FAERS Safety Report 14393924 (Version 5)
Quarter: 2018Q3

REPORT INFORMATION
  Report Type: Spontaneous
  Country: CA (occurrence: CA)
  Receive Date: 20180116
  Receipt Date: 20180926
  Transmission Date: 20181010
  Serious: Yes (Other)
  Sender: FDA-Public Use
  Company Number: CA-CELLTRION INC.-2017CA017632

PATIENT

DRUGS (2)
  1. INFLECTRA [Suspect]
     Active Substance: INFLIXIMAB-DYYB
     Indication: COLITIS ULCERATIVE
     Dosage: 10 MG/KG, CYCLIC, EVERY 0,2,6 AND EVERY 8 WEEKS
     Route: 042
     Dates: start: 20171229
  2. PREDNISONE. [Concomitant]
     Active Substance: PREDNISONE
     Dosage: UNK
     Dates: start: 201712

REACTIONS (6)
  - Back pain [Unknown]
  - Respiratory tract infection [Unknown]
  - Abdominal pain [Unknown]
  - Dysuria [Unknown]
  - Flank pain [Unknown]
  - Cold sweat [Unknown]
